FAERS Safety Report 6302835-7 (Version None)
Quarter: 2009Q3

REPORT INFORMATION
  Report Type: 
  Country: None (occurrence: None)
  Receive Date: 20090810
  Receipt Date: 20090806
  Transmission Date: 20100115
  Serious: Yes (Death, Hospitalization)
  Sender: FDA-Public Use
  Company Number: ID-SANOFI-SYNTHELABO-A01200908144

PATIENT
  Sex: Female
  Weight: 54 kg

DRUGS (14)
  1. METRONIDAZOLE [Concomitant]
     Indication: PROPHYLAXIS
     Dosage: UNK
     Dates: start: 20090515, end: 20090515
  2. CEFTRIAXONE [Concomitant]
     Indication: PROPHYLAXIS
     Dosage: UNK
     Dates: start: 20090515, end: 20090516
  3. VITAZYM [Concomitant]
     Dosage: UNK
     Dates: start: 20090513, end: 20090513
  4. CAPTOPRIL [Concomitant]
     Dosage: 12.5 MG
     Dates: start: 20090529
  5. TRAMADOL [Concomitant]
     Route: 051
     Dates: start: 20090513, end: 20090516
  6. BUSCOPAN [Concomitant]
     Dosage: UNK
     Route: 051
     Dates: start: 20090513, end: 20090513
  7. RANITIDINE [Concomitant]
     Dosage: UNK
     Route: 051
     Dates: start: 20090513, end: 20090516
  8. RANITIDINE [Concomitant]
     Route: 048
     Dates: start: 20090517, end: 20090521
  9. AVE5026 OR PLACEBO [Concomitant]
     Indication: THROMBOSIS PROPHYLAXIS
     Dosage: 1 SYRINGE DAILY
     Dates: start: 20090504, end: 20090727
  10. OXALIPLATIN [Concomitant]
     Dosage: UNK
     Dates: end: 20090414
  11. LEUCOVORIN CALCIUM [Concomitant]
     Dosage: UNK
     Dates: end: 20090415
  12. 5 FU [Concomitant]
     Indication: COLON CANCER
     Dosage: UNK
     Dates: end: 20090415
  13. XELODA [Suspect]
     Dosage: 162 G
     Route: 048
     Dates: start: 20090504
  14. ELOXATIN [Suspect]
     Indication: COLON CANCER
     Dosage: 280 MG
     Route: 041
     Dates: start: 20090504

REACTIONS (1)
  - DECREASED APPETITE [None]
